FAERS Safety Report 4466396-X (Version None)
Quarter: 2004Q3

REPORT INFORMATION
  Report Type: 
  Country: None (occurrence: None)
  Receive Date: 20040930
  Receipt Date: 20040919
  Transmission Date: 20050211
  Serious: Yes (Other)
  Sender: FDA-Public Use
  Company Number: 2004068968

PATIENT
  Sex: Female

DRUGS (6)
  1. NEURONTIN [Suspect]
     Indication: ILL-DEFINED DISORDER
     Dosage: 2400 MG
  2. MUSCLE RELAXANT (MUSCLE RELAXANT) [Suspect]
     Indication: ILL-DEFINED DISORDER
  3. VICODIN [Suspect]
     Indication: ILL-DEFINED DISORDER
  4. IBUPROFEN [Suspect]
     Indication: ILL-DEFINED DISORDER
  5. ACETAMINOPHEN [Suspect]
     Indication: ILL-DEFINED DISORDER
  6. EXEDRIN P.M. (DIPHENHYDRAMINE CITRATE, PARACETAMOL) [Concomitant]
     Indication: ILL-DEFINED DISORDER

REACTIONS (4)
  - DRUG INEFFECTIVE [None]
  - MIGRAINE [None]
  - OSTEOARTHRITIS [None]
  - ROAD TRAFFIC ACCIDENT [None]
